FAERS Safety Report 7634134-5 (Version None)
Quarter: 2011Q3

REPORT INFORMATION
  Report Type: 
  Country: None (occurrence: None)
  Receive Date: 20110725
  Receipt Date: 20110714
  Transmission Date: 20111222
  Serious: Yes (Other)
  Sender: FDA-Public Use
  Company Number: CN-ASTRAZENECA-2011SE42193

PATIENT
  Age: 45 Year
  Sex: Female

DRUGS (3)
  1. HYDROPREDNISONE [Concomitant]
     Indication: INTERVERTEBRAL DISC PROTRUSION
     Route: 037
  2. LIDOCAINE [Suspect]
     Indication: INTERVERTEBRAL DISC PROTRUSION
     Route: 037
  3. VITAMIN B-12 [Concomitant]
     Indication: INTERVERTEBRAL DISC PROTRUSION
     Route: 037

REACTIONS (10)
  - CYANOSIS [None]
  - LOSS OF CONSCIOUSNESS [None]
  - DYSPNOEA [None]
  - CHEST DISCOMFORT [None]
  - PALLOR [None]
  - BLOOD PRESSURE INCREASED [None]
  - TACHYPNOEA [None]
  - HEART RATE INCREASED [None]
  - TREMOR [None]
  - TINNITUS [None]
